FAERS Safety Report 23389802 (Version 3)
Quarter: 2024Q1

REPORT INFORMATION
  Report Type: Spontaneous
  Country: US (occurrence: US)
  Receive Date: 20240111
  Receipt Date: 20240229
  Transmission Date: 20240410
  Serious: Yes (Hospitalization, Other)
  Sender: FDA-Public Use
  Company Number: US-BRISTOL-MYERS SQUIBB COMPANY-2024-005017

PATIENT
  Age: 70 Year
  Sex: Male

DRUGS (1)
  1. REVLIMID [Suspect]
     Active Substance: LENALIDOMIDE
     Indication: Product used for unknown indication
     Dosage: QD
     Route: 048

REACTIONS (6)
  - Atrial fibrillation [Unknown]
  - Fluid retention [Unknown]
  - Thrombosis [Unknown]
  - Renal impairment [Unknown]
  - Metastases to kidney [Unknown]
  - Product dose omission issue [Unknown]
